FAERS Safety Report 7588054-5 (Version None)
Quarter: 2011Q3

REPORT INFORMATION
  Report Type: 
  Country: None (occurrence: None)
  Receive Date: 20110705
  Receipt Date: 20110629
  Transmission Date: 20111222
  Serious: No
  Sender: FDA-Public Use
  Company Number: US-PFIZER INC-2011145037

PATIENT
  Sex: Female
  Weight: 77.1 kg

DRUGS (3)
  1. CELEBREX [Concomitant]
     Indication: INFLAMMATION
     Dosage: UNK
     Route: 048
  2. AMBIEN [Concomitant]
     Dosage: UNK, AS NEEDED
     Route: 048
  3. PRISTIQ [Suspect]
     Indication: DEPRESSION
     Dosage: UNK
     Route: 048
     Dates: start: 20110601

REACTIONS (1)
  - LETHARGY [None]
